FAERS Safety Report 6774668-9 (Version None)
Quarter: 2010Q2

REPORT INFORMATION
  Report Type: 
  Country: None (occurrence: None)
  Receive Date: 20100617
  Receipt Date: 20100517
  Transmission Date: 20101027
  Serious: No
  Sender: FDA-Public Use
  Company Number: US-BAYER-201023670NA

PATIENT
  Age: 22 Year
  Sex: Male
  Weight: 59 kg

DRUGS (2)
  1. ULTRAVIST 300 [Suspect]
     Indication: COMPUTERISED TOMOGRAM ABDOMEN
     Dosage: TOTAL DAILY DOSE: 88 ML  UNIT DOSE: 200 ML
     Route: 042
     Dates: start: 20100517, end: 20100517
  2. VOLUVEN [Concomitant]
     Route: 048
     Dates: start: 20100517, end: 20100517

REACTIONS (3)
  - RASH [None]
  - SNEEZING [None]
  - URTICARIA [None]
